FAERS Safety Report 13856152 (Version 1)
Quarter: 2017Q3

REPORT INFORMATION
  Report Type: Spontaneous
  Country: FR (occurrence: FR)
  Receive Date: 20170810
  Receipt Date: 20170810
  Transmission Date: 20171127
  Serious: Yes (Other)
  Sender: FDA-Public Use
  Company Number: FR-MYLANLABS-2017M1047999

PATIENT

DRUGS (2)
  1. PAROXETINE MYLAN 20 MG COMPRIM?S PELLICUL?S [Suspect]
     Active Substance: PAROXETINE
     Indication: MENTAL DISORDER
     Dosage: 8 DF, ONCE
     Route: 048
     Dates: start: 20170712
  2. ZOPICLONE MYLAN 7.5 MG, COMPRIM? PELLICUL? S?CABLE [Suspect]
     Active Substance: ZOPICLONE
     Indication: MENTAL DISORDER
     Dosage: 8 DF, ONCE
     Route: 048
     Dates: start: 20170612

REACTIONS (7)
  - Intentional overdose [Recovered/Resolved]
  - Rash pruritic [None]
  - Pruritus [Recovered/Resolved]
  - Agitation [Recovered/Resolved]
  - Rash [Recovered/Resolved]
  - Intentional overdose [None]
  - Lip swelling [Recovered/Resolved]

NARRATIVE: CASE EVENT DATE: 20170712
